FAERS Safety Report 4973069-3 (Version None)
Quarter: 2006Q2

REPORT INFORMATION
  Report Type: 
  Country: None (occurrence: None)
  Receive Date: 20060410
  Receipt Date: 20060327
  Transmission Date: 20061013
  Serious: Yes (Other)
  Sender: FDA-Public Use
  Company Number: 2006042932

PATIENT
  Age: 67 Year
  Sex: Female

DRUGS (4)
  1. ZYVOX [Suspect]
     Indication: LUNG INFECTION
     Dosage: SEE IMAGE
     Dates: start: 20051231, end: 20060301
  2. OTHER RESPIRATORY SYSTEM PRODUCTS (OTHER RESPIRATORY SYSTEM PRODUCTS) [Concomitant]
  3. PAXIL [Concomitant]
  4. AZITHROMYCIN [Concomitant]

REACTIONS (5)
  - ANOREXIA [None]
  - FALL [None]
  - HYPOAESTHESIA [None]
  - NAUSEA [None]
  - PAIN [None]
